FAERS Safety Report 4590045-3 (Version None)
Quarter: 2005Q1

REPORT INFORMATION
  Report Type: 
  Country: None (occurrence: None)
  Receive Date: 20050224
  Receipt Date: 20050214
  Transmission Date: 20050727
  Serious: Yes (Hospitalization)
  Sender: FDA-Public Use
  Company Number: US-JNJFOC-20041104572

PATIENT
  Sex: Female
  Weight: 102.06 kg

DRUGS (6)
  1. REMICADE [Suspect]
     Route: 042
  2. REMICADE [Suspect]
     Route: 042
  3. NEURONTIN [Concomitant]
  4. SULFASALIZINE [Concomitant]
  5. OXYCONTIN [Concomitant]
     Indication: PAIN
  6. CLONIDINE [Concomitant]
     Indication: BLOOD PRESSURE

REACTIONS (3)
  - BLOOD DISORDER [None]
  - FOOT OPERATION [None]
  - KNEE ARTHROPLASTY [None]
